FAERS Safety Report 9535564 (Version 3)
Quarter: 2013Q4

REPORT INFORMATION
  Report Type: Spontaneous
  Country: DE (occurrence: DE)
  Receive Date: 20130919
  Receipt Date: 20131011
  Transmission Date: 20140711
  Serious: Yes (Hospitalization, Other)
  Sender: FDA-Public Use
  Company Number: DE-AMGEN-DEUSP2013064741

PATIENT
  Age: 59 Year
  Sex: Female
  Weight: 75 kg

DRUGS (2)
  1. XGEVA [Suspect]
     Indication: METASTASES TO BONE
     Dosage: 120 MG, UNK
     Route: 058
     Dates: start: 20130607
  2. CALCIVIT [Concomitant]
     Dosage: UNK UNK, BID
     Dates: start: 20130607, end: 20130617

REACTIONS (3)
  - Hypercalcaemia [Recovered/Resolved]
  - Renal failure acute [Recovering/Resolving]
  - General physical health deterioration [Unknown]
